FAERS Safety Report 4589382-8 (Version None)
Quarter: 2005Q1

REPORT INFORMATION
  Report Type: 
  Country: None (occurrence: None)
  Receive Date: 20050216
  Receipt Date: 20050125
  Transmission Date: 20050727
  Serious: Yes (Death)
  Sender: FDA-Public Use
  Company Number: WAES 0501USA03155

PATIENT
  Age: 59 Year
  Sex: Male

DRUGS (4)
  1. ELSPAR [Suspect]
     Indication: ACUTE LYMPHOCYTIC LEUKAEMIA
     Route: 042
  2. ADRIAMYCIN PFS [Concomitant]
  3. DEXAMETHASONE [Concomitant]
  4. VINCRISTINE SULFATE [Concomitant]

REACTIONS (4)
  - ANTITHROMBIN III DECREASED [None]
  - BLOOD FIBRINOGEN DECREASED [None]
  - BONE MARROW DEPRESSION [None]
  - GASTROINTESTINAL HAEMORRHAGE [None]
